FAERS Safety Report 17664176 (Version 1)
Quarter: 2020Q2

REPORT INFORMATION
  Report Type: Report from Study
  Country: None (occurrence: CA)
  Receive Date: 20200414
  Receipt Date: 20200414
  Transmission Date: 20200713
  Serious: Yes (Other)
  Sender: FDA-Public Use
  Company Number: CA-ABBVIE-20K-028-3360147-00

PATIENT
  Sex: Male

DRUGS (2)
  1. HUMIRA [Suspect]
     Active Substance: ADALIMUMAB
     Indication: ANKYLOSING SPONDYLITIS
     Route: 058
     Dates: start: 20190712, end: 202002
  2. HUMIRA [Suspect]
     Active Substance: ADALIMUMAB
     Route: 058
     Dates: start: 20200406

REACTIONS (5)
  - Inflammation [Recovered/Resolved]
  - Musculoskeletal stiffness [Recovered/Resolved]
  - Bursitis infective [Recovered/Resolved]
  - Fall [Recovered/Resolved]
  - Skin laceration [Not Recovered/Not Resolved]

NARRATIVE: CASE EVENT DATE: 2020
